FAERS Safety Report 18287459 (Version 1)
Quarter: 2020Q3

REPORT INFORMATION
  Report Type: Spontaneous
  Country: US (occurrence: US)
  Receive Date: 20200918
  Receipt Date: 20200918
  Transmission Date: 20201103
  Serious: Yes (Other)
  Sender: FDA-Public Use
  Company Number: None

PATIENT
  Age: 75 Year
  Sex: Male
  Weight: 68.04 kg

DRUGS (2)
  1. VANCOMYCIN 1GM [Suspect]
     Active Substance: VANCOMYCIN
     Indication: OSTEOMYELITIS
     Route: 042
     Dates: start: 20200710, end: 20200731
  2. MEROPENEM. [Suspect]
     Active Substance: MEROPENEM
     Indication: ULCER
     Route: 042
     Dates: start: 20200710

REACTIONS (4)
  - Face oedema [None]
  - Pyrexia [None]
  - Ulcer [None]
  - Rash [None]

NARRATIVE: CASE EVENT DATE: 20200730
